FAERS Safety Report 8214345-0 (Version None)
Quarter: 2012Q1

REPORT INFORMATION
  Report Type: 
  Country: None (occurrence: None)
  Receive Date: 20120316
  Receipt Date: 20120306
  Transmission Date: 20120608
  Serious: No
  Sender: FDA-Public Use
  Company Number: US-JNJFOC-20120304453

PATIENT
  Sex: Female

DRUGS (4)
  1. LORTAB [Concomitant]
     Indication: PAIN
     Route: 048
  2. FENTANYL-100 [Suspect]
     Indication: MUSCULOSKELETAL CHEST PAIN
     Dosage: NDC# 0781-7240-55
     Route: 062
     Dates: start: 20120301
  3. OXAZEPAM [Concomitant]
     Indication: ANXIETY
     Route: 048
  4. LEVOTHYROXINE SODIUM [Concomitant]
     Indication: THYROID DISORDER
     Route: 048

REACTIONS (3)
  - DRUG INEFFECTIVE [None]
  - DIZZINESS [None]
  - DRUG ADMINISTERED AT INAPPROPRIATE SITE [None]
